FAERS Safety Report 8302032-X (Version None)
Quarter: 2012Q2

REPORT INFORMATION
  Report Type: 
  Country: None (occurrence: None)
  Receive Date: 20120420
  Receipt Date: 20120416
  Transmission Date: 20120825
  Serious: Yes (Hospitalization, Disabling)
  Sender: FDA-Public Use
  Company Number: US-MERCK-1201USA02281

PATIENT
  Age: 68 Year
  Sex: Female

DRUGS (1)
  1. FOSAMAX [Suspect]
     Indication: OSTEOPOROSIS
     Route: 048
     Dates: start: 19980101, end: 20080101

REACTIONS (5)
  - HYPERTENSION [None]
  - HUMERUS FRACTURE [None]
  - DENTAL IMPLANTATION [None]
  - FEMUR FRACTURE [None]
  - CARDIAC DISORDER [None]
